FAERS Safety Report 6862707-6 (Version None)
Quarter: 2010Q3

REPORT INFORMATION
  Report Type: 
  Country: None (occurrence: None)
  Receive Date: 20100719
  Receipt Date: 20100708
  Transmission Date: 20110219
  Serious: Yes (Other)
  Sender: FDA-Public Use
  Company Number: 015204

PATIENT
  Age: 10 Year
  Sex: Female
  Weight: 35 kg

DRUGS (2)
  1. LEVETIRACETAM [Suspect]
     Indication: PARTIAL SEIZURES
     Dosage: 1500 MG
  2. LAMOTRIGINE [Suspect]
     Indication: PARTIAL SEIZURES

REACTIONS (7)
  - ABASIA [None]
  - ABNORMAL BEHAVIOUR [None]
  - CONDITION AGGRAVATED [None]
  - CONVULSION [None]
  - ENCEPHALOPATHY [None]
  - GAIT DISTURBANCE [None]
  - MYOCLONUS [None]
